FAERS Safety Report 16059670 (Version 1)
Quarter: 2019Q1

REPORT INFORMATION
  Report Type: Spontaneous
  Country: HR (occurrence: HR)
  Receive Date: 20190311
  Receipt Date: 20190311
  Transmission Date: 20190418
  Serious: Yes (Other)
  Sender: FDA-Public Use
  Company Number: PHHY2019HR052914

PATIENT
  Age: 43 Year
  Sex: Male

DRUGS (2)
  1. DAUNORUBICIN [Suspect]
     Active Substance: DAUNORUBICIN
     Indication: ACUTE MYELOID LEUKAEMIA
     Dosage: 3 PLUS 7 (60 MG/M2X3 D; ARA C 200 MG/M27 DAYS)
     Route: 065
  2. MIDOSTAURIN [Suspect]
     Active Substance: MIDOSTAURIN
     Indication: ACUTE MYELOID LEUKAEMIA
     Dosage: 2 X 50 MG (D 8-21)
     Route: 065

REACTIONS (5)
  - Astrocytoma [Unknown]
  - Glioma [Unknown]
  - Second primary malignancy [Unknown]
  - Headache [Unknown]
  - Wound [Unknown]
